FAERS Safety Report 18593188 (Version 1)
Quarter: 2020Q4

REPORT INFORMATION
  Report Type: Spontaneous
  Country: JP (occurrence: JP)
  Receive Date: 20201208
  Receipt Date: 20201208
  Transmission Date: 20210114
  Serious: Yes (Death, Other)
  Sender: FDA-Public Use
  Company Number: JP-TOLMAR, INC.-20JP024232

PATIENT
  Age: 89 Year
  Sex: Male

DRUGS (2)
  1. AMPICILLIN SULBACTAM [Suspect]
     Active Substance: AMPICILLIN SODIUM\SULBACTAM SODIUM
     Indication: PNEUMONIA ASPIRATION
     Dosage: 6 GRAM, QD
     Route: 065
  2. ACYCLOVIR. [Suspect]
     Active Substance: ACYCLOVIR
     Indication: HERPES SIMPLEX ENCEPHALITIS
     Dosage: 1500 MG, QD
     Route: 065

REACTIONS (4)
  - Herpes simplex encephalitis [Unknown]
  - Altered state of consciousness [Unknown]
  - Acute respiratory failure [Fatal]
  - Pneumonia aspiration [Fatal]
